FAERS Safety Report 9898048 (Version 2)
Quarter: 2014Q1

REPORT INFORMATION
  Report Type: Spontaneous
  Country: US (occurrence: US)
  Receive Date: 20140214
  Receipt Date: 20140214
  Transmission Date: 20141002
  Serious: Yes (Hospitalization, Other)
  Sender: FDA-Public Use
  Company Number: US-009507513-1103USA00945

PATIENT
  Sex: Female
  Weight: 105.23 kg

DRUGS (5)
  1. FOSAMAX [Suspect]
     Indication: OSTEOPENIA
     Dosage: 10 MG, QD
     Route: 048
     Dates: start: 20001018, end: 20001101
  2. FOSAMAX [Suspect]
     Indication: OSTEOPOROSIS
  3. FOSAMAX [Suspect]
     Indication: OSTEOPENIA
     Dosage: 70 MG, QW
     Route: 048
     Dates: start: 200812
  4. FOSAMAX [Suspect]
     Indication: OSTEOPOROSIS
     Dosage: 70 MG, UNK
     Route: 048
     Dates: start: 200112, end: 200811
  5. CALCIUM (UNSPECIFIED) [Concomitant]
     Dosage: UNK MG, QD
     Dates: start: 2000

REACTIONS (45)
  - Femur fracture [Unknown]
  - Intramedullary rod insertion [Unknown]
  - Tibia fracture [Unknown]
  - Fibula fracture [Unknown]
  - Impaired healing [Unknown]
  - Functional gastrointestinal disorder [Unknown]
  - Nasopharyngitis [Unknown]
  - Infection [Unknown]
  - Weight decreased [Unknown]
  - Fall [Unknown]
  - Fall [Unknown]
  - Ankle fracture [Unknown]
  - Blood potassium decreased [Unknown]
  - Osteonecrosis [Unknown]
  - Renal disorder [Unknown]
  - Blood pressure inadequately controlled [Not Recovered/Not Resolved]
  - Arthritis [Not Recovered/Not Resolved]
  - Haemorrhoids [Unknown]
  - Asthma [Unknown]
  - Fracture nonunion [Unknown]
  - Foot deformity [Not Recovered/Not Resolved]
  - Arthropathy [Not Recovered/Not Resolved]
  - Osteoarthritis [Unknown]
  - Bursitis [Unknown]
  - Nephrolithiasis [Unknown]
  - Device breakage [Unknown]
  - Cough [Unknown]
  - Fracture nonunion [Unknown]
  - Venous insufficiency [Unknown]
  - Sinus headache [Unknown]
  - Plantar fasciitis [Unknown]
  - Exostosis [Unknown]
  - Weight increased [Unknown]
  - Joint contracture [Unknown]
  - Incontinence [Unknown]
  - Rectocele [Unknown]
  - Pelvic floor muscle weakness [Unknown]
  - Electrocardiogram ST-T change [Unknown]
  - Renal cyst [Unknown]
  - Haematuria [Recovered/Resolved]
  - Haemorrhagic anaemia [Unknown]
  - Syncope [Not Recovered/Not Resolved]
  - Gastrooesophageal reflux disease [Unknown]
  - Oedema peripheral [Not Recovered/Not Resolved]
  - Vomiting [Unknown]
